FAERS Safety Report 10188026 (Version 1)
Quarter: 2014Q2

REPORT INFORMATION
  Report Type: Spontaneous
  Country: US (occurrence: US)
  Receive Date: 20140522
  Receipt Date: 20140522
  Transmission Date: 20141212
  Serious: No
  Sender: FDA-Public Use
  Company Number: US-SA-2013SA105647

PATIENT
  Age: 52 Year
  Sex: Male

DRUGS (7)
  1. LANTUS SOLOSTAR [Suspect]
     Dosage: DOSE:50 UNIT(S)
     Route: 051
  2. SOLOSTAR [Concomitant]
  3. NOVOLOG [Suspect]
     Route: 065
  4. HUMALOG [Suspect]
     Route: 065
  5. DRUG USED IN DIABETES [Suspect]
     Route: 065
  6. ANTIDEPRESSANTS [Suspect]
     Route: 065
  7. ALL OTHER THERAPEUTIC PRODUCTS [Concomitant]

REACTIONS (12)
  - Liver disorder [Unknown]
  - Nausea [Unknown]
  - Blood glucose increased [Unknown]
  - Gastrooesophageal reflux disease [Unknown]
  - Heart rate increased [Unknown]
  - Dizziness [Unknown]
  - Hypertension [Unknown]
  - Head discomfort [Unknown]
  - Vision blurred [Unknown]
  - Condition aggravated [Unknown]
  - Blood glucose decreased [Unknown]
  - Incorrect product storage [Unknown]
